FAERS Safety Report 8061234-0 (Version None)
Quarter: 2012Q1

REPORT INFORMATION
  Report Type: 
  Country: None (occurrence: None)
  Receive Date: 20120120
  Receipt Date: 20110802
  Transmission Date: 20120608
  Serious: No
  Sender: FDA-Public Use
  Company Number: US-ALLERGAN-1109580US

PATIENT
  Age: 62 Year
  Sex: Male

DRUGS (4)
  1. RESTASIS [Suspect]
     Indication: INTRAOCULAR PRESSURE INCREASED
     Dosage: 1 GTT, QHS
     Route: 047
     Dates: start: 20110707
  2. HYPERCHOLESTEREMIA DRUG [Concomitant]
     Indication: HYPERCHOLESTEROLAEMIA
     Dosage: UNK
  3. HYPERTENSION DRUG [Concomitant]
     Indication: HYPERTENSION
  4. BLINK                              /00582501/ [Concomitant]
     Indication: EYE PAIN
     Dosage: UNK
     Route: 047

REACTIONS (5)
  - OCULAR HYPERAEMIA [None]
  - EYE PAIN [None]
  - FOREIGN BODY SENSATION IN EYES [None]
  - EYE IRRITATION [None]
  - EYE PRURITUS [None]
